FAERS Safety Report 8313304-7 (Version None)
Quarter: 2012Q2

REPORT INFORMATION
  Report Type: 
  Country: None (occurrence: None)
  Receive Date: 20120426
  Receipt Date: 20120412
  Transmission Date: 20120825
  Serious: Yes (Hospitalization)
  Sender: FDA-Public Use
  Company Number: PHHY2012FR031412

PATIENT
  Age: 66 Year
  Sex: Female

DRUGS (9)
  1. NEORAL [Suspect]
     Dosage: 85 MG, BID
     Dates: start: 20111101, end: 20120220
  2. BACTRIM DS [Concomitant]
     Dosage: UNK UKN, UNK
  3. LANTUS [Concomitant]
     Dosage: UNK UKN, UNK
  4. TACROLIMUS [Concomitant]
     Dosage: UNK UKN, UNK
  5. MYCOPHENOLATE MOFETIL (CELLCEPT) [Suspect]
     Dosage: 1.5 G, BID
     Route: 048
     Dates: start: 20111101, end: 20120220
  6. PREDNISOLONE [Concomitant]
     Dosage: UNK UKN, UNK
  7. ESOMEPRAZOLE MAGNESIUM [Concomitant]
     Dosage: UNK UKN, UNK
  8. ISRADIPINE [Concomitant]
     Dosage: UNK UKN, UNK
  9. NOVORAPID [Concomitant]
     Dosage: UNK UKN, UNK

REACTIONS (3)
  - GASTROINTESTINAL TELANGIECTASIA [None]
  - ENTEROCOLITIS HAEMORRHAGIC [None]
  - ANAEMIA [None]
